FAERS Safety Report 10102157 (Version 1)
Quarter: 2014Q2

REPORT INFORMATION
  Report Type: Report from Study
  Country: US (occurrence: US)
  Receive Date: 20140424
  Receipt Date: 20140424
  Transmission Date: 20141212
  Serious: Yes (Other)
  Sender: FDA-Public Use
  Company Number: US-JNJFOC-20140414067

PATIENT
  Age: 66 Year
  Sex: Male
  Weight: 106.6 kg

DRUGS (9)
  1. REMICADE [Suspect]
     Indication: ANKYLOSING SPONDYLITIS
     Route: 042
     Dates: start: 2013, end: 201404
  2. PLAVIX [Concomitant]
     Route: 065
  3. LISINOPRIL [Concomitant]
     Route: 065
  4. ASPIRIN [Concomitant]
     Route: 065
  5. FISH OIL [Concomitant]
     Route: 065
  6. OSTEO BI-FLEX [Concomitant]
     Indication: BONE DISORDER
     Route: 065
  7. METHOTREXATE [Concomitant]
     Route: 065
  8. MULTIVITAMINS [Concomitant]
     Route: 065
  9. LIDOCOSIL [Concomitant]
     Indication: TINEA PEDIS
     Route: 065

REACTIONS (1)
  - Prostate cancer [Not Recovered/Not Resolved]
